FAERS Safety Report 4647341-0 (Version None)
Quarter: 2005Q2

REPORT INFORMATION
  Report Type: 
  Country: None (occurrence: None)
  Receive Date: 20050426
  Receipt Date: 20050412
  Transmission Date: 20051028
  Serious: Yes (Hospitalization, Other)
  Sender: FDA-Public Use
  Company Number: 2005BI000789

PATIENT
  Age: 24 Year
  Sex: Male
  Weight: 170.0989 kg

DRUGS (3)
  1. AVONEX [Suspect]
     Indication: MULTIPLE SCLEROSIS
     Dosage: 30 UG; QW; IM
     Route: 030
     Dates: start: 20040201
  2. MULTI-VITAMIN [Concomitant]
  3. CALCIUM SUPPLEMENT [Concomitant]

REACTIONS (31)
  - ACCIDENT AT WORK [None]
  - ACTIVATED PARTIAL THROMBOPLASTIN TIME PROLONGED [None]
  - AURA [None]
  - BLOOD PHOSPHORUS DECREASED [None]
  - CHEST PAIN [None]
  - CONDITION AGGRAVATED [None]
  - DYSPNOEA [None]
  - DYSURIA [None]
  - FALL [None]
  - FATIGUE [None]
  - FIBULA FRACTURE [None]
  - GRAND MAL CONVULSION [None]
  - HAEMATURIA [None]
  - HEADACHE [None]
  - HEART RATE INCREASED [None]
  - INFLUENZA LIKE ILLNESS [None]
  - INFUSION SITE PAIN [None]
  - JOINT SWELLING [None]
  - JUGULAR VEIN THROMBOSIS [None]
  - LABORATORY TEST ABNORMAL [None]
  - MULTIPLE SCLEROSIS [None]
  - MUSCLE SPASMS [None]
  - OBESITY [None]
  - PULMONARY EMBOLISM [None]
  - SENSORY DISTURBANCE [None]
  - TENDERNESS [None]
  - TREATMENT NONCOMPLIANCE [None]
  - URINARY TRACT INFECTION [None]
  - VENTRICULAR HYPERTROPHY [None]
  - VISUAL DISTURBANCE [None]
  - WHITE BLOOD CELL COUNT INCREASED [None]
